FAERS Safety Report 6555327-4 (Version None)
Quarter: 2010Q1

REPORT INFORMATION
  Report Type: 
  Country: None (occurrence: None)
  Receive Date: 20100128
  Receipt Date: 20090522
  Transmission Date: 20100710
  Serious: No
  Sender: FDA-Public Use
  Company Number: A0785875A

PATIENT
  Age: 68 Year
  Sex: Male

DRUGS (2)
  1. WELLBUTRIN [Suspect]
     Indication: DEPRESSION
     Dosage: 75MG TWICE PER DAY
     Route: 048
     Dates: start: 19990101, end: 20080101
  2. SYNTHROID [Concomitant]

REACTIONS (1)
  - NEURALGIA [None]
